FAERS Safety Report 14274663 (Version 1)
Quarter: 2017Q4

REPORT INFORMATION
  Report Type: Spontaneous
  Country: US (occurrence: US)
  Receive Date: 20171212
  Receipt Date: 20171212
  Transmission Date: 20180321
  Serious: Yes (Hospitalization)
  Sender: FDA-Public Use
  Company Number: US-AKORN PHARMACEUTICALS-2017AKN01408

PATIENT

DRUGS (1)
  1. ERYTHROMYCIN-SULFISOXAZOLE [Suspect]
     Active Substance: ERYTHROMYCIN ETHYLSUCCINATE\SULFISOXAZOLE ACETYL
     Route: 065

REACTIONS (2)
  - Acute hepatic failure [Unknown]
  - Liver transplant [Unknown]
